FAERS Safety Report 26061983 (Version 2)
Quarter: 2025Q4

REPORT INFORMATION
  Report Type: Report from Study
  Country: GB (occurrence: GB)
  Receive Date: 20251119
  Receipt Date: 20251125
  Transmission Date: 20260119
  Serious: Yes (Hospitalization, Other)
  Sender: ABBVIE
  Company Number: GB-ABBVIE-6546968

PATIENT
  Age: 87 Year
  Sex: Female

DRUGS (1)
  1. HUMIRA [Suspect]
     Active Substance: ADALIMUMAB
     Indication: Rheumatoid arthritis
     Dosage: 2 PRE-FILLED DISPOSABLE INJECTION
     Route: 058

REACTIONS (3)
  - Injury corneal [Unknown]
  - Blindness [Unknown]
  - Cough [Unknown]

NARRATIVE: CASE EVENT DATE: 20250101
